FAERS Safety Report 11723423 (Version 1)
Quarter: 2015Q4

REPORT INFORMATION
  Report Type: Spontaneous
  Country: US (occurrence: US)
  Receive Date: 20151111
  Receipt Date: 20151111
  Transmission Date: 20160304
  Serious: Yes (Congenital Anomaly, Other)
  Sender: FDA-Public Use
  Company Number: US-BAUSCH-BL-2015-026754

PATIENT
  Sex: Male

DRUGS (2)
  1. VASOTEC [Suspect]
     Active Substance: ENALAPRIL MALEATE
     Indication: HYPERTENSION
     Route: 064
  2. VASOTEC [Suspect]
     Active Substance: ENALAPRIL MALEATE
     Route: 064
     Dates: end: 20140429

REACTIONS (9)
  - Maternal drugs affecting foetus [Unknown]
  - Premature baby [Unknown]
  - Septum pellucidum agenesis [Unknown]
  - Congenital hypothyroidism [Unknown]
  - Septo-optic dysplasia [Unknown]
  - Adrenal insufficiency [Unknown]
  - Strabismus [Unknown]
  - Optic nerve hypoplasia [Unknown]
  - Hypopituitarism [Unknown]
